FAERS Safety Report 8001917-1 (Version None)
Quarter: 2011Q4

REPORT INFORMATION
  Report Type: 
  Country: None (occurrence: None)
  Receive Date: 20111220
  Receipt Date: 20111201
  Transmission Date: 20120403
  Serious: Yes (Hospitalization, Other)
  Sender: FDA-Public Use
  Company Number: JPI-P-018518

PATIENT
  Age: 53 Year
  Sex: Female

DRUGS (12)
  1. XYREM [Suspect]
     Indication: NARCOLEPSY
     Dosage: ORAL, 9 GM (4.5 GM, 2 IN 1 D), ORAL
     Route: 048
     Dates: end: 20111023
  2. XYREM [Suspect]
     Indication: NARCOLEPSY
     Dosage: ORAL, 9 GM (4.5 GM, 2 IN 1 D), ORAL
     Route: 048
     Dates: start: 20050310
  3. TOPIRAMATE [Concomitant]
  4. METFORMIN HYDROCHLORIDE [Concomitant]
  5. OXYCODONE HCL [Concomitant]
  6. QUERCETIN [Concomitant]
  7. HYDROCODONE BITARTRATE AND ACETAMINOPHEN [Concomitant]
  8. LEVOTHYROXINE SODIUM [Concomitant]
  9. DULOXETINE HYDROCHLORIDE [Concomitant]
  10. LISINOPRIL [Concomitant]
  11. CLOPIDOGREL BISULFATE [Concomitant]
  12. FEXOFENADINE HYDROCHLORIDE [Concomitant]

REACTIONS (1)
  - LOWER LIMB FRACTURE [None]
